FAERS Safety Report 9674275 (Version 1)
Quarter: 2013Q4

REPORT INFORMATION
  Report Type: Report from Study
  Country: DE (occurrence: DE)
  Receive Date: 20131107
  Receipt Date: 20131107
  Transmission Date: 20140711
  Serious: Yes (Hospitalization)
  Sender: FDA-Public Use
  Company Number: DE-ROCHE-1297773

PATIENT
  Age: 5 Year
  Sex: Female
  Weight: 14.5 kg

DRUGS (5)
  1. VALGANCICLOVIR [Suspect]
     Indication: CYTOMEGALOVIRUS INFECTION
     Route: 065
  2. MYCOPHENOLATE MOFETIL [Suspect]
     Indication: ENTERITIS
     Dosage: DATE OF LAST DOSE PRIOR TO SAE: 18/NOV/2010
     Route: 048
     Dates: start: 20100503
  3. TACROLIMUS [Suspect]
     Indication: PRODUCT USED FOR UNKNOWN INDICATION
     Dosage: DATE OF LAST DOSE PRIOR TO SAE: 18/NOV/2010
     Route: 048
     Dates: start: 20100503
  4. METHYLPREDNISOLONE/METHYLPREDNISOLONE SODIUM SUCCINATE [Suspect]
     Indication: PRODUCT USED FOR UNKNOWN INDICATION
     Dosage: DATE OF LAST DOSE PRIOR TO SAE: 18/NOV/2010
     Route: 042
     Dates: start: 20100503
  5. KEPINOL [Concomitant]
     Dosage: DATE OF LAST DOSE PRIOR TO SAE: 17/NOV/2010
     Route: 048
     Dates: start: 20100506

REACTIONS (1)
  - Enteritis [Recovered/Resolved]
